FAERS Safety Report 9312299 (Version 1)
Quarter: 2013Q1

REPORT INFORMATION
  Report Type: Spontaneous
  Country: PL (occurrence: None)
  Receive Date: 20130208
  Receipt Date: 20130208
  Transmission Date: 20140127
  Serious: Yes (Hospitalization)
  Sender: FDA-Public Use
  Company Number: 2013SGN00002

PATIENT
  Age: 33 Year
  Sex: Male
  Weight: 52 kg

DRUGS (3)
  1. BRENTUXIMAB VEDOTIN [Suspect]
     Indication: HODGKIN^S DISEASE
     Dosage: 1.2 MG/KG, Q21D, INTRAVENOUS
     Route: 042
     Dates: start: 20120925, end: 20121120
  2. ACICLOVIR (ACICLOVIR SODIUM) [Concomitant]
  3. TRIMETHOPRIM SULFAMETHOXAZOLE (SULFAMETHOXAZOLE, TRIMETHOPRIM) [Concomitant]

REACTIONS (2)
  - Dermatitis allergic [None]
  - Impetigo [None]
